FAERS Safety Report 24695040 (Version 1)
Quarter: 2024Q4

REPORT INFORMATION
  Report Type: Spontaneous
  Country: US (occurrence: None)
  Receive Date: 20241204
  Receipt Date: 20241204
  Transmission Date: 20250115
  Serious: Yes (Hospitalization)
  Sender: Public
  Company Number: None

PATIENT
  Age: 63 Year
  Sex: Female
  Weight: 75.1 kg

DRUGS (5)
  1. FLUOROURACIL [Suspect]
     Active Substance: FLUOROURACIL
     Dates: end: 20241119
  2. XELODA [Suspect]
     Active Substance: CAPECITABINE
     Dates: end: 20240730
  3. CAMPTOSAR [Suspect]
     Active Substance: IRINOTECAN HYDROCHLORIDE
     Dates: end: 20241021
  4. LEUCOVORIN CALCIUM [Suspect]
     Active Substance: LEUCOVORIN CALCIUM
     Dates: end: 20241119
  5. ELOXATIN [Suspect]
     Active Substance: OXALIPLATIN
     Dates: end: 20241112

REACTIONS (6)
  - Diarrhoea [None]
  - Vomiting [None]
  - Fractured sacrum [None]
  - Fall [None]
  - Hypokalaemia [None]
  - Urinary tract infection [None]

NARRATIVE: CASE EVENT DATE: 20241126
